FAERS Safety Report 7603305-6 (Version None)
Quarter: 2011Q3

REPORT INFORMATION
  Report Type: 
  Country: None (occurrence: None)
  Receive Date: 20110711
  Receipt Date: 20110711
  Transmission Date: 20111222
  Serious: Yes (Life-Threatening, Hospitalization)
  Sender: FDA-Public Use
  Company Number: None

PATIENT
  Age: 85 Year
  Sex: Female
  Weight: 50.3493 kg

DRUGS (15)
  1. SOTALOL HCL [Concomitant]
  2. CELEXA [Concomitant]
  3. VITAMIN B [Concomitant]
  4. DIGOXIN [Concomitant]
  5. PRADAXA [Suspect]
     Indication: ATRIAL FIBRILLATION
     Dosage: 150MG BID PO
     Route: 048
  6. SIMVASTATIN [Concomitant]
  7. VERAPAMIL [Concomitant]
  8. MIRALAX [Concomitant]
  9. SINEMET [Concomitant]
  10. LISINOPRIL [Concomitant]
  11. FUROSEMIDE [Concomitant]
  12. ALENDRONATE SODIUM [Concomitant]
  13. CALCITONIN SALMON [Concomitant]
  14. ASPIRIN [Concomitant]
  15. SYNTHROID [Concomitant]

REACTIONS (3)
  - GASTROINTESTINAL HAEMORRHAGE [None]
  - SHOCK [None]
  - ACUTE MYOCARDIAL INFARCTION [None]
